FAERS Safety Report 5016704-6 (Version None)
Quarter: 2006Q2

REPORT INFORMATION
  Report Type: 
  Country: None (occurrence: None)
  Receive Date: 20060602
  Receipt Date: 20040128
  Transmission Date: 20061013
  Serious: No
  Sender: FDA-Public Use
  Company Number: US-GLAXOSMITHKLINE-A0495355A

PATIENT
  Age: 7 Year
  Sex: Female

DRUGS (1)
  1. AUGMENTIN '125' [Suspect]
     Indication: DRUG USE FOR UNKNOWN INDICATION
     Dosage: 7.5ML TWICE PER DAY
     Route: 048
     Dates: start: 20040122

REACTIONS (1)
  - DRUG ADMINISTRATION ERROR [None]
